FAERS Safety Report 17982020 (Version 1)
Quarter: 2020Q3

REPORT INFORMATION
  Report Type: Spontaneous
  Country: US (occurrence: US)
  Receive Date: 20200706
  Receipt Date: 20200706
  Transmission Date: 20201103
  Serious: No
  Sender: FDA-Public Use
  Company Number: US-BEH-2020119579

PATIENT
  Age: 63 Year
  Sex: Female

DRUGS (2)
  1. DICLOFENAC POTASSIUM. [Concomitant]
     Active Substance: DICLOFENAC POTASSIUM
  2. HIZENTRA [Suspect]
     Active Substance: HUMAN IMMUNOGLOBULIN G
     Indication: SELECTIVE IGG SUBCLASS DEFICIENCY
     Dosage: 20 GRAM, QOW
     Route: 065
     Dates: start: 20191008

REACTIONS (1)
  - Asthma [Not Recovered/Not Resolved]
